FAERS Safety Report 9508675 (Version 3)
Quarter: 2014Q2

REPORT INFORMATION
  Report Type: Spontaneous
  Country: US (occurrence: US)
  Receive Date: 20130909
  Receipt Date: 20140402
  Transmission Date: 20141212
  Serious: Yes (Death, Life-Threatening, Hospitalization)
  Sender: FDA-Public Use
  Company Number: US-GLAXOSMITHKLINE-A1040488A

PATIENT
  Age: 6 Year
  Sex: Female

DRUGS (2)
  1. TYKERB [Suspect]
     Indication: ADRENAL GLAND CANCER
     Dosage: 500MG TWICE PER DAY
     Route: 048
     Dates: start: 20130815, end: 20130825
  2. UNKNOWN [Concomitant]

REACTIONS (2)
  - Disease progression [Fatal]
  - Respiratory arrest [Fatal]
